FAERS Safety Report 9491066 (Version 2)
Quarter: 2013Q3

REPORT INFORMATION
  Report Type: Spontaneous
  Country: PH (occurrence: PH)
  Receive Date: 20130830
  Receipt Date: 20130930
  Transmission Date: 20140515
  Serious: Yes (Hospitalization)
  Sender: FDA-Public Use
  Company Number: PH-PFIZER INC-2013249125

PATIENT
  Age: 60 Year
  Sex: Female

DRUGS (5)
  1. LIPITOR [Suspect]
     Indication: BLOOD CHOLESTEROL INCREASED
     Dosage: 40 MG, 1X/DAY
  2. LOSARTAN [Concomitant]
     Dosage: 50 MG, 1X/DAY
  3. IMDUR [Concomitant]
     Dosage: 30 MG (HALF TABLET), ONCE A DAY
  4. PROPANOLOL [Concomitant]
     Dosage: 10 MG, 1X/DAY
  5. CLOPIDOGREL [Concomitant]
     Dosage: 75 MG, 1X/DAY

REACTIONS (1)
  - Chest pain [Unknown]
